FAERS Safety Report 6411037-5 (Version None)
Quarter: 2009Q4

REPORT INFORMATION
  Report Type: 
  Country: None (occurrence: None)
  Receive Date: 20091021
  Receipt Date: 20091021
  Transmission Date: 20100525
  Serious: Yes (Other)
  Sender: FDA-Public Use
  Company Number: None

PATIENT
  Age: 82 Year
  Sex: Female
  Weight: 65.7716 kg

DRUGS (1)
  1. CLINDAMYCIN [Suspect]
     Indication: CELLULITIS
     Dosage: T CAP 3X DAILY PO
     Route: 048
     Dates: start: 20091015, end: 20091020

REACTIONS (2)
  - GASTROOESOPHAGEAL REFLUX DISEASE [None]
  - NO THERAPEUTIC RESPONSE [None]
